FAERS Safety Report 25504783 (Version 1)
Quarter: 2025Q3

REPORT INFORMATION
  Report Type: Spontaneous
  Country: CN (occurrence: CN)
  Receive Date: 20250702
  Receipt Date: 20250702
  Transmission Date: 20251021
  Serious: Yes (Other)
  Sender: EISAI
  Company Number: CN-Eisai-EC-2025-192429

PATIENT
  Age: 51 Year
  Sex: Male
  Weight: 55 kg

DRUGS (1)
  1. LENVATINIB [Suspect]
     Active Substance: LENVATINIB
     Indication: Hepatic cancer
     Dates: start: 20250601, end: 20250624

REACTIONS (1)
  - Diarrhoea [Recovering/Resolving]

NARRATIVE: CASE EVENT DATE: 20250624
